FAERS Safety Report 9264316 (Version 3)
Quarter: 2013Q3

REPORT INFORMATION
  Report Type: Spontaneous
  Country: FR (occurrence: FR)
  Receive Date: 20130430
  Receipt Date: 20130812
  Transmission Date: 20140515
  Serious: Yes (Life-Threatening, Hospitalization, Other)
  Sender: FDA-Public Use
  Company Number: FR-ASTRAZENECA-2013SE28979

PATIENT
  Age: 470 Month
  Sex: Female

DRUGS (9)
  1. XEROQUEL [Suspect]
     Indication: BIPOLAR DISORDER
     Route: 048
     Dates: start: 20120607, end: 20130405
  2. TERALITHE [Concomitant]
     Indication: BIPOLAR I DISORDER
     Route: 048
     Dates: start: 20090603
  3. SERESTA [Concomitant]
     Indication: BIPOLAR I DISORDER
     Route: 048
     Dates: start: 20110905, end: 20130227
  4. SERESTA [Concomitant]
     Indication: BIPOLAR I DISORDER
     Route: 048
     Dates: end: 20130412
  5. SEROPRAM [Concomitant]
     Indication: BIPOLAR I DISORDER
     Route: 048
     Dates: start: 20060216, end: 20130517
  6. STILNOX [Concomitant]
     Route: 048
  7. UNSPECIFIED ANTIPSYCHOTIC DRUGS [Concomitant]
  8. HAVLANE [Concomitant]
  9. TAHOR [Concomitant]
     Route: 048

REACTIONS (21)
  - Coma [Recovered/Resolved]
  - Delirium [Recovered/Resolved]
  - Fall [Recovered/Resolved]
  - Loss of consciousness [Not Recovered/Not Resolved]
  - Violence-related symptom [Recovered/Resolved]
  - Suicidal ideation [Recovered/Resolved]
  - Rash [Not Recovered/Not Resolved]
  - Mania [Not Recovered/Not Resolved]
  - Balance disorder [Not Recovered/Not Resolved]
  - Nausea [Not Recovered/Not Resolved]
  - Amnesia [Unknown]
  - Epilepsy [Not Recovered/Not Resolved]
  - Vision blurred [Not Recovered/Not Resolved]
  - Dizziness [Not Recovered/Not Resolved]
  - Somnambulism [Not Recovered/Not Resolved]
  - Nasal dryness [Recovered/Resolved]
  - Diarrhoea [Recovered/Resolved]
  - Insomnia [Recovered/Resolved]
  - Muscular weakness [Recovered/Resolved]
  - Nightmare [Recovered/Resolved]
  - Tremor [Recovered/Resolved]
